FAERS Safety Report 7455942-X (Version None)
Quarter: 2011Q2

REPORT INFORMATION
  Report Type: 
  Country: None (occurrence: None)
  Receive Date: 20110503
  Receipt Date: 20110427
  Transmission Date: 20111010
  Serious: Yes (Other)
  Sender: FDA-Public Use
  Company Number: PHHY2011KR35623

PATIENT
  Age: 54 Year
  Sex: Female

DRUGS (4)
  1. ISOVIST [Suspect]
     Dosage: 0.5 MG, TWICE
  2. LIDOCAINE [Suspect]
     Dosage: 0.5 ML, UNK
  3. STEROIDS NOS [Concomitant]
     Indication: CERVICOBRACHIAL SYNDROME
     Route: 008
  4. TRIAMCINOLONE [Suspect]
     Dosage: 15 MG, UNK

REACTIONS (9)
  - VISUAL ACUITY REDUCED [None]
  - VASOGENIC CEREBRAL OEDEMA [None]
  - POSTERIOR REVERSIBLE ENCEPHALOPATHY SYNDROME [None]
  - DIZZINESS [None]
  - BLINDNESS CORTICAL [None]
  - VISUAL IMPAIRMENT [None]
  - HEADACHE [None]
  - BLOOD PRESSURE DECREASED [None]
  - NAUSEA [None]
